FAERS Safety Report 14614414 (Version 3)
Quarter: 2018Q4

REPORT INFORMATION
  Report Type: Spontaneous
  Country: SI (occurrence: SI)
  Receive Date: 20180308
  Receipt Date: 20181003
  Transmission Date: 20190204
  Serious: Yes (Hospitalization, Other)
  Sender: FDA-Public Use
  Company Number: PHHY2018SI036371

PATIENT
  Age: 44 Year
  Sex: Male

DRUGS (9)
  1. EDEMID [Suspect]
     Active Substance: FUROSEMIDE
     Dosage: 40 MG, Q12H (RESTRICTION OF FLUID 1.5 L PER DAY)
     Route: 048
  2. ENTRESTO [Suspect]
     Active Substance: SACUBITRIL\VALSARTAN
     Dosage: 100 MG, Q12H
     Route: 065
  3. ALDACTONE [Suspect]
     Active Substance: SPIRONOLACTONE
     Dosage: UNK, PRN (AS NEEDED, TAKES RARELY)
     Route: 065
  4. EDEMID [Suspect]
     Active Substance: FUROSEMIDE
     Indication: CARDIAC FAILURE
     Dosage: 20 MG, UNK
     Route: 042
  5. DILATREND [Suspect]
     Active Substance: CARVEDILOL
     Indication: CARDIAC FAILURE
     Dosage: 3.13 MG, Q12H
     Route: 065
  6. PERINDOPRIL [Suspect]
     Active Substance: PERINDOPRIL
     Indication: CARDIAC FAILURE
     Dosage: 2 MG, UNK
     Route: 065
  7. ALDACTONE [Suspect]
     Active Substance: SPIRONOLACTONE
     Indication: CARDIAC FAILURE
     Dosage: 25 MG, UNK
     Route: 065
  8. ENTRESTO [Suspect]
     Active Substance: SACUBITRIL\VALSARTAN
     Indication: CARDIAC FAILURE
     Dosage: 50 MG, Q12H
     Route: 065
  9. CARVEDILOL. [Suspect]
     Active Substance: CARVEDILOL
     Indication: CARDIAC FAILURE
     Dosage: 3.125 MG, Q12H
     Route: 065

REACTIONS (28)
  - Cough [Unknown]
  - Fatigue [Unknown]
  - Heart rate increased [Unknown]
  - Sinus tachycardia [Unknown]
  - Pericardial effusion [Unknown]
  - Blood parathyroid hormone abnormal [Unknown]
  - Blood pressure increased [Unknown]
  - N-terminal prohormone brain natriuretic peptide increased [Unknown]
  - Left atrial enlargement [Unknown]
  - Dyspnoea [Recovering/Resolving]
  - Blood bilirubin increased [Unknown]
  - Abdominal pain upper [Unknown]
  - Ejection fraction decreased [Unknown]
  - Oedema peripheral [Unknown]
  - Cardiac failure [Unknown]
  - Blood pressure abnormal [Unknown]
  - Pulmonary hypertension [Unknown]
  - Hypervolaemia [Unknown]
  - Poor quality sleep [Unknown]
  - Bundle branch block left [Unknown]
  - Cardiac ventricular disorder [Unknown]
  - Cardiomyopathy [Unknown]
  - Heart disease congenital [Unknown]
  - Asthenia [Unknown]
  - Pain [Unknown]
  - Left ventricular enlargement [Unknown]
  - Cardiac failure chronic [Unknown]
  - Glomerular filtration rate decreased [Unknown]

NARRATIVE: CASE EVENT DATE: 20171024
